FAERS Safety Report 8623911-X (Version None)
Quarter: 2012Q3

REPORT INFORMATION
  Report Type: 
  Country: None (occurrence: None)
  Receive Date: 20120827
  Receipt Date: 20120821
  Transmission Date: 20120928
  Serious: Yes (Hospitalization)
  Sender: FDA-Public Use
  Company Number: PHEH2012US016463

PATIENT
  Sex: Female

DRUGS (3)
  1. WARFARIN SODIUM [Concomitant]
  2. DIOVAN [Suspect]
     Dosage: 1 DF, DAILY
  3. SYNTHROID [Concomitant]

REACTIONS (4)
  - PULMONARY EMBOLISM [None]
  - PYREXIA [None]
  - BACK PAIN [None]
  - DYSPNOEA [None]
